FAERS Safety Report 12903022 (Version 1)
Quarter: 2016Q4

REPORT INFORMATION
  Report Type: Spontaneous
  Country: US (occurrence: US)
  Receive Date: 20161102
  Receipt Date: 20161102
  Transmission Date: 20170207
  Serious: Yes (Hospitalization)
  Sender: FDA-Public Use
  Company Number: US-SA-2016SA198006

PATIENT
  Sex: Male

DRUGS (5)
  1. IMOVAX RABIES [Suspect]
     Active Substance: RABIES VIRUS STRAIN PM-1503-3M ANTIGEN (PROPIOLACTONE INACTIVATED)
     Indication: IMMUNISATION
     Route: 030
     Dates: start: 20160927, end: 20160927
  2. IMOVAX RABIES [Suspect]
     Active Substance: RABIES VIRUS STRAIN PM-1503-3M ANTIGEN (PROPIOLACTONE INACTIVATED)
     Indication: IMMUNISATION
     Route: 030
     Dates: start: 20161002, end: 20161002
  3. IMOGAM RABIES [Suspect]
     Active Substance: HUMAN RABIES VIRUS IMMUNE GLOBULIN
     Indication: IMMUNISATION
     Route: 030
     Dates: start: 20160920, end: 20160920
  4. IMOVAX RABIES [Suspect]
     Active Substance: RABIES VIRUS STRAIN PM-1503-3M ANTIGEN (PROPIOLACTONE INACTIVATED)
     Indication: IMMUNISATION
     Route: 030
     Dates: start: 20160920, end: 20160920
  5. IMOVAX RABIES [Suspect]
     Active Substance: RABIES VIRUS STRAIN PM-1503-3M ANTIGEN (PROPIOLACTONE INACTIVATED)
     Indication: IMMUNISATION
     Route: 030
     Dates: start: 20160923, end: 20160923

REACTIONS (8)
  - Feeling abnormal [Not Recovered/Not Resolved]
  - Balance disorder [Not Recovered/Not Resolved]
  - Chest discomfort [Not Recovered/Not Resolved]
  - Lymphadenopathy [Not Recovered/Not Resolved]
  - Paraesthesia [Not Recovered/Not Resolved]
  - Arthralgia [Not Recovered/Not Resolved]
  - Headache [Not Recovered/Not Resolved]
  - Hypoaesthesia [Not Recovered/Not Resolved]
